FAERS Safety Report 8766615 (Version 2)
Quarter: 2012Q4

REPORT INFORMATION
  Report Type: 
  Country: JP (occurrence: JP)
  Receive Date: 20120904
  Receipt Date: 20120906
  Transmission Date: 20130627
  Serious: Yes (Life-Threatening, Hospitalization)
  Sender: FDA-Public Use
  Company Number: JP-JNJFOC-20120813225

PATIENT
  Age: 44 Year
  Sex: Male
  Weight: 69 kg

DRUGS (10)
  1. REMICADE [Suspect]
     Indication: COLITIS ULCERATIVE
     Dosage: fourth dose
     Route: 042
     Dates: start: 20110323
  2. REMICADE [Suspect]
     Indication: COLITIS ULCERATIVE
     Route: 042
     Dates: start: 20101209
  3. ASACOL [Concomitant]
     Indication: COLITIS ULCERATIVE
     Route: 048
  4. PREDONINE [Concomitant]
     Indication: COLITIS ULCERATIVE
     Route: 048
  5. URSO [Concomitant]
     Indication: HEPATIC STEATOSIS
     Route: 048
  6. PARIET [Concomitant]
     Indication: GASTRIC ULCER
     Route: 048
  7. MUCOSTA [Concomitant]
     Indication: GASTRIC ULCER
     Route: 048
  8. DRIED FERROUS SULPHATE [Concomitant]
     Indication: IRON DEFICIENCY ANAEMIA
     Route: 048
  9. ONEALFA [Concomitant]
     Indication: OSTEOPOROSIS
     Route: 048
  10. AZANIN [Concomitant]
     Route: 048
     Dates: start: 20110617

REACTIONS (1)
  - Interstitial lung disease [Recovered/Resolved]
